FAERS Safety Report 5175719-8 (Version None)
Quarter: 2006Q4

REPORT INFORMATION
  Report Type: 
  Country: None (occurrence: None)
  Receive Date: 20061215
  Receipt Date: 20060802
  Transmission Date: 20070319
  Serious: Yes (Other)
  Sender: FDA-Public Use
  Company Number: US-BAYER-200613262BCC

PATIENT
  Age: 54 Year
  Sex: Male
  Weight: 93 kg

DRUGS (8)
  1. ASPIRIN [Suspect]
     Indication: PROPHYLAXIS
     Dosage: UNIT DOSE: 81 MG
     Route: 048
     Dates: start: 20050101
  2. ASPIRIN [Suspect]
     Dosage: UNIT DOSE: 81 MG
     Route: 048
     Dates: start: 20050101
  3. ASPIRIN [Suspect]
     Indication: ARTHRITIS
     Dosage: TOTAL DAILY DOSE: 325 MG  UNIT DOSE: 325 MG
     Route: 048
     Dates: start: 20050801
  4. PLAVIX [Concomitant]
  5. LIPITOR [Concomitant]
  6. TOPROL-XL [Concomitant]
  7. DILANTIN [Concomitant]
  8. TRICOR [Concomitant]

REACTIONS (3)
  - DYSPHONIA [None]
  - LOSS OF CONSCIOUSNESS [None]
  - SPEECH DISORDER [None]
